FAERS Safety Report 4608456-6 (Version None)
Quarter: 2005Q1

REPORT INFORMATION
  Report Type: 
  Country: None (occurrence: None)
  Receive Date: 20050311
  Receipt Date: 20050223
  Transmission Date: 20050727
  Serious: Yes (Life-Threatening, Hospitalization)
  Sender: FDA-Public Use
  Company Number: 2005-BP-02964BR

PATIENT
  Age: 57 Year
  Sex: Female

DRUGS (4)
  1. ATROVENT DROPS (IPRATROPIUM BROMIDE) (TR) [Suspect]
     Indication: DYSPNOEA
     Dosage: 0.25 MG (0.25 MG, 20 DROPS) IH
     Route: 055
  2. ATROVENT DROPS (IPRATROPIUM BROMIDE) (TR) [Suspect]
     Indication: PALLOR
     Dosage: 0.25 MG (0.25 MG, 20 DROPS) IH
     Route: 055
  3. BEROTEC [Suspect]
     Indication: DYSPNOEA
     Dosage: 2.5 MG (2.5 MG, 10 DROPS) IH
     Route: 055
  4. BEROTEC [Suspect]
     Indication: PALLOR
     Dosage: 2.5 MG (2.5 MG, 10 DROPS) IH
     Route: 055

REACTIONS (3)
  - ASTHENIA [None]
  - CARDIO-RESPIRATORY ARREST [None]
  - OFF LABEL USE [None]
